FAERS Safety Report 8459079-2 (Version None)
Quarter: 2012Q2

REPORT INFORMATION
  Report Type: 
  Country: None (occurrence: None)
  Receive Date: 20120622
  Receipt Date: 20120613
  Transmission Date: 20120825
  Serious: Yes (Other)
  Sender: FDA-Public Use
  Company Number: CA-ROCHE-1078894

PATIENT
  Sex: Female
  Weight: 48.124 kg

DRUGS (5)
  1. DILANTIN [Concomitant]
  2. DEXAMETHASONE [Concomitant]
  3. AVASTIN [Suspect]
     Indication: LUNG NEOPLASM MALIGNANT
  4. PEMETREXED [Concomitant]
  5. AVASTIN [Suspect]
     Indication: RADIATION NECROSIS
     Route: 042
     Dates: start: 20120529

REACTIONS (3)
  - APHONIA [None]
  - FEELING ABNORMAL [None]
  - DYSPHAGIA [None]
